FAERS Safety Report 9661174 (Version 1)
Quarter: 2013Q4

REPORT INFORMATION
  Report Type: Spontaneous
  Country: US (occurrence: US)
  Receive Date: 20131031
  Receipt Date: 20131031
  Transmission Date: 20140711
  Serious: No
  Sender: FDA-Public Use
  Company Number: US-ENDO PHARMACEUTICALS INC.-ALLO20110030

PATIENT
  Age: 63 Year
  Sex: Male
  Weight: 102.15 kg

DRUGS (6)
  1. ALLOPURINOL TABLETS 300MG [Suspect]
     Indication: GOUT
     Route: 048
     Dates: start: 201111
  2. TESTIM [Concomitant]
     Indication: HORMONE REPLACEMENT THERAPY
     Dosage: 50MG/5GM TUBE STRENGTH
     Route: 061
     Dates: start: 2008
  3. ATENOLOL [Concomitant]
     Indication: BLOOD PRESSURE INCREASED
     Route: 048
     Dates: start: 2008
  4. PLAQUENIL [Concomitant]
     Indication: RHEUMATOID ARTHRITIS
     Route: 048
     Dates: start: 20110607
  5. MULTIVITAMIN [Concomitant]
     Indication: SUPPLEMENTATION THERAPY
     Route: 048
  6. IBUPROFEN [Concomitant]
     Indication: PAIN
     Route: 065
     Dates: start: 2010

REACTIONS (4)
  - Flatulence [Not Recovered/Not Resolved]
  - Abdominal pain [Not Recovered/Not Resolved]
  - Abdominal discomfort [Not Recovered/Not Resolved]
  - Diarrhoea [Not Recovered/Not Resolved]
